FAERS Safety Report 7035908-4 (Version None)
Quarter: 2010Q4

REPORT INFORMATION
  Report Type: 
  Country: None (occurrence: None)
  Receive Date: 20101008
  Receipt Date: 20100929
  Transmission Date: 20110411
  Serious: Yes (Other)
  Sender: FDA-Public Use
  Company Number: PHHO2010AR15161

PATIENT

DRUGS (1)
  1. ACZ885 ACZ+ [Suspect]
     Dosage: UNK

REACTIONS (4)
  - BURNING SENSATION [None]
  - PAIN IN EXTREMITY [None]
  - PARONYCHIA [None]
  - SKIN LESION [None]
